FAERS Safety Report 11799270 (Version 1)
Quarter: 2015Q4

REPORT INFORMATION
  Report Type: Spontaneous
  Country: US (occurrence: US)
  Receive Date: 20151203
  Receipt Date: 20151203
  Transmission Date: 20160305
  Serious: No
  Sender: FDA-Public Use
  Company Number: US-AMGEN-USASP2015123482

PATIENT
  Age: 78 Year
  Sex: Female

DRUGS (1)
  1. REPATHA [Suspect]
     Active Substance: EVOLOCUMAB
     Indication: PRODUCT USED FOR UNKNOWN INDICATION
     Dosage: 140 MG, Q2WK
     Route: 065

REACTIONS (11)
  - Musculoskeletal stiffness [Unknown]
  - Headache [Unknown]
  - Arthralgia [Unknown]
  - Heart rate increased [Unknown]
  - Dyspepsia [Unknown]
  - Irritability [Unknown]
  - Confusional state [Unknown]
  - Extrasystoles [Unknown]
  - Tinnitus [Unknown]
  - Night sweats [Unknown]
  - Fatigue [Unknown]
